FAERS Safety Report 5824290-3 (Version None)
Quarter: 2008Q3

REPORT INFORMATION
  Report Type: 
  Country: None (occurrence: None)
  Receive Date: 20080728
  Receipt Date: 20080718
  Transmission Date: 20090109
  Serious: Yes (Other)
  Sender: FDA-Public Use
  Company Number: US-ROCHE-552225

PATIENT
  Sex: Female
  Weight: 54.4 kg

DRUGS (2)
  1. ACCUTANE [Suspect]
     Indication: ACNE
     Route: 065
     Dates: start: 19971001, end: 19980401
  2. ACCUTANE [Suspect]
     Route: 065
     Dates: start: 19981201, end: 19990601

REACTIONS (4)
  - BLOOD BILIRUBIN INCREASED [None]
  - COLITIS [None]
  - INFLAMMATORY BOWEL DISEASE [None]
  - PROCTITIS [None]
